FAERS Safety Report 17276856 (Version 1)
Quarter: 2020Q1

REPORT INFORMATION
  Report Type: Spontaneous
  Country: US (occurrence: US)
  Receive Date: 20200116
  Receipt Date: 20200116
  Transmission Date: 20200409
  Serious: No
  Sender: FDA-Public Use
  Company Number: US-PFIZER INC-2020014578

PATIENT
  Age: 24 Year
  Sex: Female

DRUGS (2)
  1. NIVESTYM [Suspect]
     Active Substance: FILGRASTIM-AAFI
     Indication: AGRANULOCYTOSIS
     Dosage: 300 UG, UNK
  2. NIVESTYM [Suspect]
     Active Substance: FILGRASTIM-AAFI
     Indication: LYMPHOMA
     Dosage: 300 MG, DAILY FOR 3 DAYS

REACTIONS (2)
  - Off label use [Unknown]
  - Nasopharyngitis [Unknown]
